FAERS Safety Report 8916195 (Version 1)
Quarter: 2012Q4

REPORT INFORMATION
  Report Type: 
  Country: US (occurrence: US)
  Receive Date: 20121120
  Receipt Date: 20121120
  Transmission Date: 20130627
  Serious: No
  Sender: FDA-Public Use
  Company Number: US-ASTRAZENECA-2012SE84781

PATIENT
  Age: 65 Year
  Sex: Male
  Weight: 74.4 kg

DRUGS (7)
  1. SYMBICORT [Suspect]
     Indication: ASTHMA
     Dosage: 160/4.5 MCG, TWO PUFFS, TWO TIMES A DAY
     Route: 055
     Dates: start: 201207, end: 20120713
  2. SYMBICORT [Suspect]
     Indication: BRONCHITIS
     Dosage: 160/4.5 MCG, TWO PUFFS, TWO TIMES A DAY
     Route: 055
     Dates: start: 201207, end: 20120713
  3. SYMBICORT [Suspect]
     Indication: ASTHMA
     Dosage: 160/4.5 MCG, ONE PUFF, TWO TIMES A DAY
     Route: 055
     Dates: start: 20120713, end: 20121022
  4. SYMBICORT [Suspect]
     Indication: BRONCHITIS
     Dosage: 160/4.5 MCG, ONE PUFF, TWO TIMES A DAY
     Route: 055
     Dates: start: 20120713, end: 20121022
  5. AVAPRO [Concomitant]
     Indication: HYPERTENSION
     Dosage: DAILY
     Route: 048
     Dates: start: 201207
  6. DIOVAN [Concomitant]
     Indication: HYPERTENSION
     Route: 048
  7. CORTISONE [Concomitant]
     Indication: OSTEOARTHRITIS

REACTIONS (4)
  - Wheezing [Unknown]
  - Alopecia [Recovering/Resolving]
  - Intentional drug misuse [Unknown]
  - Drug dose omission [Unknown]
